FAERS Safety Report 23875105 (Version 1)
Quarter: 2024Q2

REPORT INFORMATION
  Report Type: Spontaneous
  Country: US (occurrence: None)
  Receive Date: 20240520
  Receipt Date: 20240520
  Transmission Date: 20240716
  Serious: No
  Sender: FDA-Public Use
  Company Number: None

PATIENT
  Age: 79 Year
  Sex: Male
  Weight: 90.72 kg

DRUGS (1)
  1. ODOMZO [Suspect]
     Active Substance: SONIDEGIB
     Indication: Basal cell carcinoma
     Dosage: TAKE 1 CAPSULE BY MOUTH DAILY ON EMPTY STOMACH AT LEAST 1 HOUR BEFORE OR 2 HOURS AFTER
     Route: 048
     Dates: start: 202404

REACTIONS (2)
  - Pharyngitis streptococcal [None]
  - Ageusia [None]
